FAERS Safety Report 8160644-0 (Version None)
Quarter: 2012Q1

REPORT INFORMATION
  Report Type: 
  Country: None (occurrence: None)
  Receive Date: 20120223
  Receipt Date: 20120215
  Transmission Date: 20120608
  Serious: Yes (Hospitalization)
  Sender: FDA-Public Use
  Company Number: ES-ROCHE-1040972

PATIENT
  Sex: Male

DRUGS (3)
  1. AVASTIN [Suspect]
     Indication: COLORECTAL CANCER
     Dosage: LAST DOSE PRIOR TO SAE 31 JAN 2012
     Route: 042
     Dates: start: 20110125, end: 20120214
  2. IRINOTECAN HCL [Suspect]
     Indication: COLORECTAL CANCER
     Dosage: LAST DOSE PRIOR TO SAE 07 FEB 2012
     Route: 042
     Dates: start: 20110125, end: 20120214
  3. FLUOROURACIL [Suspect]
     Indication: COLORECTAL CANCER
     Dosage: LAST DOSE PRIOR TO SAE 04 FEB 2012
     Route: 042
     Dates: start: 20110125, end: 20120214

REACTIONS (2)
  - HYPOCAPNIA [None]
  - HYPOXIA [None]
